FAERS Safety Report 8392159-9 (Version None)
Quarter: 2012Q2

REPORT INFORMATION
  Report Type: 
  Country: None (occurrence: None)
  Receive Date: 20120529
  Receipt Date: 20120524
  Transmission Date: 20120825
  Serious: No
  Sender: FDA-Public Use
  Company Number: US-BAYER-2012-051881

PATIENT
  Sex: Female

DRUGS (1)
  1. CLIMARA PRO [Suspect]

REACTIONS (1)
  - HEADACHE [None]
